FAERS Safety Report 9134636 (Version 1)
Quarter: 2013Q1

REPORT INFORMATION
  Report Type: Spontaneous
  Country: US (occurrence: US)
  Receive Date: 20130304
  Receipt Date: 20130304
  Transmission Date: 20140127
  Serious: No
  Sender: FDA-Public Use
  Company Number: US-PFIZER INC-2013070413

PATIENT
  Age: 45 Year
  Sex: Female
  Weight: 86.62 kg

DRUGS (1)
  1. FLUCONAZOLE [Suspect]
     Dosage: ONE DOSE

REACTIONS (1)
  - Drug ineffective [Unknown]
